FAERS Safety Report 10349688 (Version 1)
Quarter: 2014Q3

REPORT INFORMATION
  Report Type: Spontaneous
  Country: US (occurrence: None)
  Receive Date: 20140728
  Receipt Date: 20140728
  Transmission Date: 20150326
  Serious: Yes (Other)
  Sender: FDA-Public Use
  Company Number: None

PATIENT
  Age: 22 Year
  Sex: Female
  Weight: 61.24 kg

DRUGS (3)
  1. CYMBALTA [Suspect]
     Active Substance: DULOXETINE HYDROCHLORIDE
     Indication: FATIGUE
     Dosage: 1 PILL
     Route: 048
     Dates: start: 20140510, end: 20140712
  2. CYMBALTA [Suspect]
     Active Substance: DULOXETINE HYDROCHLORIDE
     Indication: NEURALGIA
     Dosage: 1 PILL
     Route: 048
     Dates: start: 20140510, end: 20140712
  3. CYMBALTA [Suspect]
     Active Substance: DULOXETINE HYDROCHLORIDE
     Indication: DEPRESSION
     Dosage: 1 PILL
     Route: 048
     Dates: start: 20140510, end: 20140712

REACTIONS (5)
  - Product substitution issue [None]
  - Disease recurrence [None]
  - Anhedonia [None]
  - Major depression [None]
  - Apathy [None]

NARRATIVE: CASE EVENT DATE: 20140725
